FAERS Safety Report 15774196 (Version 1)
Quarter: 2018Q4

REPORT INFORMATION
  Report Type: Spontaneous
  Country: US (occurrence: US)
  Receive Date: 20181229
  Receipt Date: 20181229
  Transmission Date: 20190205
  Serious: Yes (Death, Life-Threatening, Hospitalization, Other)
  Sender: FDA-Public Use
  Company Number: US-AUROBINDO-AUR-APL-2018-060979

PATIENT
  Age: 13 Year
  Sex: Female

DRUGS (1)
  1. TRAMADOL. [Suspect]
     Active Substance: TRAMADOL
     Indication: PRODUCT USED FOR UNKNOWN INDICATION
     Dosage: UNK
     Route: 065

REACTIONS (8)
  - Dyspnoea [Unknown]
  - Respiratory arrest [Unknown]
  - Pulmonary oedema [Fatal]
  - Cardiac arrest [Unknown]
  - Mydriasis [Unknown]
  - Brain death [Unknown]
  - Unresponsive to stimuli [Unknown]
  - Drug abuse [Fatal]
